FAERS Safety Report 11532528 (Version 2)
Quarter: 2015Q4

REPORT INFORMATION
  Report Type: Spontaneous
  Country: US (occurrence: US)
  Receive Date: 20150921
  Receipt Date: 20151110
  Transmission Date: 20160304
  Serious: Yes (Death, Other)
  Sender: FDA-Public Use
  Company Number: US-TEVA-595527USA

PATIENT
  Sex: Female

DRUGS (2)
  1. ESTROGEN NOS [Suspect]
     Active Substance: ESTROGENS
     Route: 065
  2. PREMARIN [Suspect]
     Active Substance: ESTROGENS, CONJUGATED
     Route: 065

REACTIONS (1)
  - Uterine cancer [Fatal]
